FAERS Safety Report 9928752 (Version 1)
Quarter: 2014Q1

REPORT INFORMATION
  Report Type: Spontaneous
  Country: US (occurrence: US)
  Receive Date: 20140227
  Receipt Date: 20140227
  Transmission Date: 20141002
  Serious: Yes (Disabling)
  Sender: FDA-Public Use
  Company Number: US-BAYER-2014-030665

PATIENT
  Sex: Female

DRUGS (2)
  1. YAZ [Suspect]
     Dosage: UNK
     Dates: start: 200810, end: 200907
  2. YASMIN [Suspect]
     Dosage: UNK
     Dates: start: 200810, end: 200907

REACTIONS (9)
  - Pulmonary embolism [None]
  - Pain [None]
  - Injury [None]
  - Deformity [None]
  - General physical health deterioration [None]
  - Emotional distress [None]
  - Pain [None]
  - Anxiety [None]
  - Anhedonia [None]
